FAERS Safety Report 8505024-0 (Version None)
Quarter: 2012Q3

REPORT INFORMATION
  Report Type: 
  Country: None (occurrence: None)
  Receive Date: 20120702
  Receipt Date: 20120613
  Transmission Date: 20120928
  Serious: Yes (Hospitalization)
  Sender: FDA-Public Use
  Company Number: JPI-P-022023

PATIENT
  Age: 60 Year
  Sex: Female

DRUGS (2)
  1. XYREM [Suspect]
     Indication: CATAPLEXY
     Dosage: 5 GM (2.5 GM,2 IN 1 D),ORAL,  6 GM (3 GM,2 IN 1 D),ORAL
     Dates: start: 20101006
  2. XYREM [Suspect]
     Indication: CATAPLEXY
     Dosage: 5 GM (2.5 GM,2 IN 1 D),ORAL,  6 GM (3 GM,2 IN 1 D),ORAL
     Dates: start: 20110310

REACTIONS (3)
  - DIARRHOEA [None]
  - ABSCESS INTESTINAL [None]
  - DIVERTICULITIS [None]
